FAERS Safety Report 24254999 (Version 1)
Quarter: 2024Q3

REPORT INFORMATION
  Report Type: Spontaneous
  Country: US (occurrence: US)
  Receive Date: 20240827
  Receipt Date: 20240827
  Transmission Date: 20241016
  Serious: No
  Sender: PFIZER
  Company Number: US-PFIZER INC-202400242343

PATIENT

DRUGS (2)
  1. HALCION [Suspect]
     Active Substance: TRIAZOLAM
     Dosage: 25MG OR .25
  2. HALCION [Suspect]
     Active Substance: TRIAZOLAM
     Dosage: .125

REACTIONS (1)
  - Irritability [Unknown]
